FAERS Safety Report 18747574 (Version 2)
Quarter: 2021Q1

REPORT INFORMATION
  Report Type: Report from Study
  Country: US (occurrence: US)
  Receive Date: 20210115
  Receipt Date: 20210305
  Transmission Date: 20210419
  Serious: Yes (Hospitalization)
  Sender: FDA-Public Use
  Company Number: US-BAUSCH-BL-2021-001695

PATIENT
  Age: 12 Year
  Sex: Male

DRUGS (2)
  1. XENAZINE [Suspect]
     Active Substance: TETRABENAZINE
     Indication: PRODUCT USE IN UNAPPROVED INDICATION
  2. XENAZINE [Suspect]
     Active Substance: TETRABENAZINE
     Indication: NEURODEGENERATION WITH BRAIN IRON ACCUMULATION DISORDER
     Route: 048
     Dates: start: 201810

REACTIONS (4)
  - Hospitalisation [Recovered/Resolved]
  - Hospice care [Unknown]
  - Product use in unapproved indication [Unknown]
  - Therapy interrupted [Unknown]

NARRATIVE: CASE EVENT DATE: 201810
